FAERS Safety Report 7094288-9 (Version None)
Quarter: 2010Q4

REPORT INFORMATION
  Report Type: 
  Country: None (occurrence: None)
  Receive Date: 20101102
  Receipt Date: 20101025
  Transmission Date: 20110411
  Serious: Yes (Life-Threatening, Hospitalization, Other)
  Sender: FDA-Public Use
  Company Number: 2010MA004001

PATIENT
  Age: 36 Year
  Sex: Male

DRUGS (5)
  1. FEVERALL [Suspect]
     Indication: SUICIDE ATTEMPT
     Dosage: 100 DF;X1
     Route: 054
  2. DIHYDROCODEINE BITARTRATE INJ [Suspect]
     Indication: SUICIDE ATTEMPT
     Dosage: 10 DF;X1
  3. ALCOHOL (ETHANOL) [Suspect]
     Indication: SUICIDE ATTEMPT
     Dosage: 4 DF;X1
  4. TOPIRAMATE [Suspect]
  5. PREV MEDS [Concomitant]

REACTIONS (2)
  - MULTIPLE DRUG OVERDOSE INTENTIONAL [None]
  - SUICIDE ATTEMPT [None]
